FAERS Safety Report 4966008-2 (Version None)
Quarter: 2006Q2

REPORT INFORMATION
  Report Type: 
  Country: None (occurrence: None)
  Receive Date: 20060407
  Receipt Date: 20060404
  Transmission Date: 20061013
  Serious: Yes (Other)
  Sender: FDA-Public Use
  Company Number: US-GLAXOSMITHKLINE-A0600806A

PATIENT
  Age: 38 Year
  Sex: Female

DRUGS (3)
  1. EPIVIR [Suspect]
     Indication: HIV INFECTION
     Dosage: 300MGD UNKNOWN
     Route: 048
     Dates: end: 20060127
  2. REYATAZ [Concomitant]
     Indication: HIV INFECTION
     Dosage: 400MGD UNKNOWN
     Route: 048
     Dates: end: 20060127
  3. DIDANOSINE [Concomitant]
     Indication: HIV INFECTION
     Dosage: 400MGD UNKNOWN
     Route: 048

REACTIONS (2)
  - ABORTION SPONTANEOUS [None]
  - DRUG EXPOSURE DURING PREGNANCY [None]
